FAERS Safety Report 5814977-0 (Version None)
Quarter: 2008Q3

REPORT INFORMATION
  Report Type: 
  Country: None (occurrence: None)
  Receive Date: 20080718
  Receipt Date: 20080717
  Transmission Date: 20090109
  Serious: Yes (Death)
  Sender: FDA-Public Use
  Company Number: PHBS2007IE15260

PATIENT
  Sex: Male
  Weight: 70.9 kg

DRUGS (2)
  1. EXFORGE [Suspect]
     Indication: HYPERTENSION
     Dosage: VALS 80 / AMLO 5 MG
     Route: 048
     Dates: start: 20070905
  2. NEOCLARITYN [Concomitant]
     Indication: PRURITUS
     Dosage: UNK, PRN
     Route: 048
     Dates: start: 20070905

REACTIONS (10)
  - ARRHYTHMIA [None]
  - ARTERIOSCLEROSIS [None]
  - BLOOD PRESSURE INCREASED [None]
  - CARDIAC HYPERTROPHY [None]
  - CORONARY ARTERY DILATATION [None]
  - FALL [None]
  - HEPATIC CONGESTION [None]
  - PULMONARY CONGESTION [None]
  - SUDDEN DEATH [None]
  - VENTRICULAR HYPERTROPHY [None]
